FAERS Safety Report 23140079 (Version 1)
Quarter: 2023Q4

REPORT INFORMATION
  Report Type: Spontaneous
  Country: US (occurrence: US)
  Receive Date: 20231102
  Receipt Date: 20231102
  Transmission Date: 20240109
  Serious: No
  Sender: FDA-Public Use
  Company Number: US-PFIZER INC-202300352650

PATIENT
  Age: 27 Year
  Sex: Female

DRUGS (4)
  1. CIBINQO [Suspect]
     Active Substance: ABROCITINIB
     Indication: Dermatitis atopic
     Dosage: 200 MG, DAILY (TAKE 1 PILL)
  2. CIBINQO [Suspect]
     Active Substance: ABROCITINIB
     Indication: Eczema
  3. CIBINQO [Suspect]
     Active Substance: ABROCITINIB
     Indication: Skin erosion
  4. CIBINQO [Suspect]
     Active Substance: ABROCITINIB
     Indication: Atrophic vulvovaginitis

REACTIONS (1)
  - Condition aggravated [Unknown]
